FAERS Safety Report 7083498-2 (Version None)
Quarter: 2010Q4

REPORT INFORMATION
  Report Type: 
  Country: None (occurrence: None)
  Receive Date: 20101027
  Receipt Date: 20101018
  Transmission Date: 20110411
  Serious: Yes (Hospitalization)
  Sender: FDA-Public Use
  Company Number: TPA2010A04914

PATIENT
  Age: 70 Year
  Sex: Male

DRUGS (4)
  1. ADENURIC (FEBUXOSTAT) [Suspect]
     Indication: HYPERURICAEMIA
     Dosage: 80 MG, PER ORAL
     Route: 048
     Dates: start: 20100721, end: 20100101
  2. PREVISCAN (FLUINDIONE) [Suspect]
     Indication: THROMBOSIS PROPHYLAXIS
     Dosage: PER ORAL
     Route: 048
  3. VALSARTAN AND HYDROCHLOROTHIAZIDE [Concomitant]
  4. ATORVASTATIN CALCIUM [Concomitant]

REACTIONS (2)
  - INTERNATIONAL NORMALISED RATIO INCREASED [None]
  - RECTAL HAEMORRHAGE [None]
